FAERS Safety Report 6026470-3 (Version None)
Quarter: 2009Q1

REPORT INFORMATION
  Report Type: 
  Country: None (occurrence: None)
  Receive Date: 20090102
  Receipt Date: 20081222
  Transmission Date: 20090719
  Serious: Yes (Hospitalization)
  Sender: FDA-Public Use
  Company Number: CH-PFIZER INC-2008157901

PATIENT

DRUGS (4)
  1. PONSTAN [Suspect]
     Indication: RHEUMATOID ARTHRITIS
     Route: 048
     Dates: start: 20081113, end: 20081123
  2. PREDNISOLONE AND PREDNISOLONE STEAGLATE [Suspect]
     Indication: RHEUMATOID ARTHRITIS
     Route: 048
     Dates: start: 20080501
  3. ECOFENAC [Suspect]
     Route: 048
     Dates: start: 20080501, end: 20081113
  4. METHOTREXATE [Concomitant]
     Dosage: UNK
     Route: 048
     Dates: start: 20051201

REACTIONS (3)
  - ANAEMIA [None]
  - DUODENAL ULCER HAEMORRHAGE [None]
  - SHOCK HAEMORRHAGIC [None]
